FAERS Safety Report 9625619 (Version 4)
Quarter: 2013Q4

REPORT INFORMATION
  Report Type: Spontaneous
  Country: US (occurrence: US)
  Receive Date: 20131016
  Receipt Date: 20131223
  Transmission Date: 20140711
  Serious: Yes (Other)
  Sender: FDA-Public Use
  Company Number: US-UCBSA-099823

PATIENT
  Sex: Female

DRUGS (2)
  1. KEPPRA XR [Suspect]
     Indication: CONVULSION
     Dosage: DRUG STRENGTH: 750 MG 4/DAILY
     Dates: start: 2002, end: 2013
  2. CYMBALTA [Concomitant]
     Dosage: UNKNOWN

REACTIONS (7)
  - Intervertebral disc displacement [Not Recovered/Not Resolved]
  - Back pain [Not Recovered/Not Resolved]
  - Pain in extremity [Not Recovered/Not Resolved]
  - Muscle spasms [Not Recovered/Not Resolved]
  - Neck pain [Not Recovered/Not Resolved]
  - Inappropriate schedule of drug administration [Unknown]
  - Convulsion [Recovered/Resolved]
